FAERS Safety Report 14553469 (Version 2)
Quarter: 2018Q2

REPORT INFORMATION
  Report Type: Report from Study
  Country: FR (occurrence: FR)
  Receive Date: 20180220
  Receipt Date: 20180402
  Transmission Date: 20180711
  Serious: Yes (Hospitalization)
  Sender: FDA-Public Use
  Company Number: FR-JNJFOC-20180215619

PATIENT
  Age: 35 Year
  Sex: Male
  Weight: 58 kg

DRUGS (20)
  1. STELARA [Suspect]
     Active Substance: USTEKINUMAB
     Indication: BEHCET^S SYNDROME
     Route: 058
     Dates: start: 20171222, end: 20180130
  2. PREDNISONE. [Concomitant]
     Active Substance: PREDNISONE
     Indication: PANNICULITIS
     Route: 048
     Dates: start: 20171110, end: 20171127
  3. PREDNISONE. [Concomitant]
     Active Substance: PREDNISONE
     Indication: PANNICULITIS
     Route: 048
     Dates: start: 20171206, end: 20171217
  4. FOLIC ACID. [Concomitant]
     Active Substance: FOLIC ACID
     Indication: FOLATE DEFICIENCY
     Route: 048
     Dates: start: 20171116
  5. PREDNISONE. [Concomitant]
     Active Substance: PREDNISONE
     Indication: PANNICULITIS
     Route: 048
     Dates: start: 20180120
  6. CICLOPIROX. [Concomitant]
     Active Substance: CICLOPIROX
     Indication: TINEA INFECTION
     Route: 062
     Dates: start: 20171121
  7. NEFOPAM [Concomitant]
     Active Substance: NEFOPAM
     Indication: SKIN ULCER
     Route: 048
     Dates: start: 20171123
  8. PREDNISONE. [Concomitant]
     Active Substance: PREDNISONE
     Indication: BEHCET^S SYNDROME
     Route: 048
     Dates: start: 20171110, end: 20171127
  9. PREDNISONE. [Concomitant]
     Active Substance: PREDNISONE
     Indication: PANNICULITIS
     Route: 048
     Dates: start: 20171128, end: 20171205
  10. TRAMADOL. [Concomitant]
     Active Substance: TRAMADOL
     Indication: SKIN ULCER
     Route: 048
     Dates: start: 20171104
  11. PARACETAMOL [Concomitant]
     Active Substance: ACETAMINOPHEN
     Indication: SKIN ULCER
     Route: 048
     Dates: start: 20171104
  12. PREDNISONE. [Concomitant]
     Active Substance: PREDNISONE
     Indication: PANNICULITIS
     Route: 048
     Dates: start: 20171218, end: 20171222
  13. PREDNISONE. [Concomitant]
     Active Substance: PREDNISONE
     Indication: PANNICULITIS
     Route: 048
     Dates: start: 20171223, end: 20180119
  14. PREDNISONE. [Concomitant]
     Active Substance: PREDNISONE
     Indication: BEHCET^S SYNDROME
     Route: 048
     Dates: start: 20171128, end: 20171205
  15. PREDNISONE. [Concomitant]
     Active Substance: PREDNISONE
     Indication: BEHCET^S SYNDROME
     Route: 048
     Dates: start: 20171223, end: 20180119
  16. ENOXAPARIN [Concomitant]
     Active Substance: ENOXAPARIN
     Indication: VENOUS THROMBOSIS
     Route: 058
     Dates: start: 20171104
  17. PREDNISONE. [Concomitant]
     Active Substance: PREDNISONE
     Indication: BEHCET^S SYNDROME
     Route: 048
     Dates: start: 20171218, end: 20171222
  18. PREDNISONE. [Concomitant]
     Active Substance: PREDNISONE
     Indication: BEHCET^S SYNDROME
     Route: 048
     Dates: start: 20180120
  19. PREDNISONE. [Concomitant]
     Active Substance: PREDNISONE
     Indication: BEHCET^S SYNDROME
     Route: 048
     Dates: start: 20171206, end: 20171217
  20. COLCHICINE. [Concomitant]
     Active Substance: COLCHICINE
     Indication: BEHCET^S SYNDROME
     Route: 048

REACTIONS (1)
  - Aortic aneurysm [Recovered/Resolved]

NARRATIVE: CASE EVENT DATE: 20180129
